FAERS Safety Report 23167730 (Version 2)
Quarter: 2024Q1

REPORT INFORMATION
  Report Type: Spontaneous
  Country: US (occurrence: US)
  Receive Date: 20231109
  Receipt Date: 20240307
  Transmission Date: 20240410
  Serious: No
  Sender: FDA-Public Use
  Company Number: US-SANOFI-01834884

PATIENT
  Age: 11 Year
  Sex: Male
  Weight: 63.039 kg

DRUGS (4)
  1. ALTUVIIIO [Suspect]
     Active Substance: EFANESOCTOCOG ALFA
     Indication: Factor VIII deficiency
     Dosage: 2900 IU +/- 10%, QW ON WEDNESDAY SLOW INJECTION OVER 4-6 MINUTES FOR EPISODIC AND PROPHYLACTIC BLEED
     Route: 042
     Dates: start: 20231106
  2. OXCARBAZEPINE [Concomitant]
     Active Substance: OXCARBAZEPINE
     Indication: Epilepsy
     Dosage: 4 PILLS IN MORNING AND 2 NIGHT
  3. KEPPRA [Concomitant]
     Active Substance: LEVETIRACETAM
     Indication: Epilepsy
     Dosage: UNK
  4. ADYNOVATE [Concomitant]
     Active Substance: ANTIHEMOPHILIC FACTOR, HUMAN RECOMBINANT
     Dosage: 2 TIMES A WEEK FOR PROPHYLAXIS FOR EPISODIC BLEEDING

REACTIONS (8)
  - Dizziness [Recovered/Resolved]
  - Nausea [Recovered/Resolved]
  - Feeling hot [Recovered/Resolved]
  - Haemorrhage [Recovered/Resolved]
  - Gait disturbance [Recovered/Resolved]
  - Weight bearing difficulty [Recovered/Resolved]
  - Headache [Recovered/Resolved]
  - Incorrect drug administration rate [Unknown]

NARRATIVE: CASE EVENT DATE: 20231106
